FAERS Safety Report 8240387-5 (Version None)
Quarter: 2012Q1

REPORT INFORMATION
  Report Type: 
  Country: None (occurrence: None)
  Receive Date: 20120328
  Receipt Date: 20120322
  Transmission Date: 20120608
  Serious: Yes (Hospitalization, Other)
  Sender: FDA-Public Use
  Company Number: JP-SANOFI-AVENTIS-2012SA018251

PATIENT
  Age: 83 Year
  Sex: Male

DRUGS (3)
  1. PIOGLITAZONE [Suspect]
     Indication: DIABETES MELLITUS
     Route: 065
  2. AMARYL [Suspect]
     Indication: DIABETES MELLITUS
     Route: 048
  3. MITIGLINIDE [Suspect]
     Indication: DIABETES MELLITUS
     Route: 065

REACTIONS (1)
  - TOXIC EPIDERMAL NECROLYSIS [None]
